FAERS Safety Report 15642893 (Version 2)
Quarter: 2018Q4

REPORT INFORMATION
  Report Type: Spontaneous
  Country: US (occurrence: US)
  Receive Date: 20181121
  Receipt Date: 20181207
  Transmission Date: 20190205
  Serious: Yes (Hospitalization)
  Sender: FDA-Public Use
  Company Number: US-ELI_LILLY_AND_COMPANY-US201811006493

PATIENT
  Age: 54 Year
  Sex: Female

DRUGS (3)
  1. HUMALOG [Suspect]
     Active Substance: INSULIN LISPRO
     Indication: TYPE 1 DIABETES MELLITUS
     Dosage: 3-28 UNITS, PRN, THREE TIMES PER DAY
     Route: 058
     Dates: start: 20180925
  2. HUMALOG [Suspect]
     Active Substance: INSULIN LISPRO
     Dosage: 3-28 UNITS, PRN, THREE TIMES PER DAY
     Route: 058
  3. TOUJEO [Concomitant]
     Active Substance: INSULIN GLARGINE
     Indication: PRODUCT USED FOR UNKNOWN INDICATION
     Dosage: UNK

REACTIONS (7)
  - Underdose [Unknown]
  - Infection [Unknown]
  - Product storage error [Unknown]
  - Product dose omission [Not Recovered/Not Resolved]
  - Nephrolithiasis [Recovering/Resolving]
  - Blood glucose increased [Not Recovered/Not Resolved]
  - Ill-defined disorder [Unknown]

NARRATIVE: CASE EVENT DATE: 20181111
